FAERS Safety Report 13984276 (Version 7)
Quarter: 2019Q3

REPORT INFORMATION
  Report Type: Spontaneous
  Country: NO (occurrence: NO)
  Receive Date: 20170918
  Receipt Date: 20190802
  Transmission Date: 20191004
  Serious: Yes (Other)
  Sender: FDA-Public Use
  Company Number: NO-MYLANLABS-2017M1058688

PATIENT
  Age: 43 Year
  Sex: Female

DRUGS (11)
  1. CAPECITABINE. [Suspect]
     Active Substance: CAPECITABINE
     Indication: INSULINOMA
  2. INSULIN [Concomitant]
     Active Substance: INSULIN NOS
     Dosage: 34 INTERNATIONAL UNIT (BASAL/BOLUS REGIME OF 34 IU INSULIN DAILY)
  3. TEMOZOLOMIDE. [Suspect]
     Active Substance: TEMOZOLOMIDE
     Indication: METASTATIC NEOPLASM
     Dosage: UNK  (TEN YEARS POSTSURGERY)
     Route: 048
  4. INSULIN [Concomitant]
     Active Substance: INSULIN NOS
     Indication: PRODUCT USED FOR UNKNOWN INDICATION
     Dosage: 42?50 IU DAILY, GIVEN AS FOUR BOLUS DOSES AT MEALTIMES AND ONE BASAL DOSE AT BEDTIME
  5. TEMOZOLOMIDE. [Suspect]
     Active Substance: TEMOZOLOMIDE
     Indication: METASTASES TO LIVER
  6. INSULIN [Concomitant]
     Active Substance: INSULIN NOS
     Dosage: 4 DOSAGE FORM (42?50 IU DAILY, GIVEN AS FOUR BOLUS DOSES AT MEALTIMES)
  7. INSULIN [Concomitant]
     Active Substance: INSULIN NOS
     Dosage: 8 INTERNATIONAL UNIT, QD (MEALTIME BOLUS DOSES WERE GRADUALLY REDUCED TO A TOTAL)
  8. TEMOZOLOMIDE. [Suspect]
     Active Substance: TEMOZOLOMIDE
     Indication: INSULINOMA
  9. CAPECITABINE. [Suspect]
     Active Substance: CAPECITABINE
     Indication: METASTATIC NEOPLASM
     Dosage: UNK
     Route: 065
  10. INSULIN [Concomitant]
     Active Substance: INSULIN NOS
     Dosage: 28 INTERNATIONAL UNIT, QD
  11. CAPECITABINE. [Suspect]
     Active Substance: CAPECITABINE
     Indication: METASTASES TO LIVER
     Dosage: TEN YEARS POSTSURGERY
     Route: 048

REACTIONS (3)
  - Product use in unapproved indication [Unknown]
  - Off label use [Unknown]
  - Coeliac disease [Recovering/Resolving]
